FAERS Safety Report 20653028 (Version 1)
Quarter: 2022Q1

REPORT INFORMATION
  Report Type: Report from Study
  Country: TR (occurrence: TR)
  Receive Date: 20220330
  Receipt Date: 20220330
  Transmission Date: 20220424
  Serious: Yes (Other)
  Sender: FDA-Public Use
  Company Number: TR-PFIZER INC-202200187824

PATIENT
  Sex: Female

DRUGS (2)
  1. SOMATROPIN [Suspect]
     Active Substance: SOMATROPIN
     Indication: Turner^s syndrome
     Dosage: 0.3 MG/KG, WEEKLY
     Route: 058
  2. ESTROGENS [Concomitant]
     Active Substance: ESTROGENS
     Dosage: 2 MG

REACTIONS (1)
  - Osteochondroma [Unknown]
